FAERS Safety Report 5890174-8 (Version None)
Quarter: 2008Q3

REPORT INFORMATION
  Report Type: 
  Country: None (occurrence: None)
  Receive Date: 20080919
  Receipt Date: 20080909
  Transmission Date: 20090109
  Serious: Yes (Other)
  Sender: FDA-Public Use
  Company Number: AR-PFIZER INC-2008073443

PATIENT
  Age: 67 Year
  Sex: Male

DRUGS (6)
  1. ALDACTONE [Suspect]
     Indication: HYPERTENSION
     Route: 048
  2. ALDACTONE [Suspect]
     Dosage: DAILY DOSE:25MG
     Route: 048
  3. ALDACTONE [Suspect]
     Dosage: DAILY DOSE:12.5MG
     Route: 048
     Dates: end: 20080801
  4. ALDACTONE [Suspect]
     Dosage: DAILY DOSE:25MG
     Route: 048
     Dates: start: 20080829
  5. TAMSULOSIN HCL [Concomitant]
     Route: 048
  6. TESTOSTERONE [Concomitant]
     Route: 061
     Dates: end: 20080801

REACTIONS (4)
  - BLOOD TESTOSTERONE INCREASED [None]
  - BREAST INFLAMMATION [None]
  - HYPERTENSION [None]
  - PULMONARY CONGESTION [None]
